FAERS Safety Report 20696806 (Version 1)
Quarter: 2022Q2

REPORT INFORMATION
  Report Type: Spontaneous
  Country: US (occurrence: None)
  Receive Date: 20220408
  Receipt Date: 20220408
  Transmission Date: 20220721
  Serious: Yes (Hospitalization)
  Sender: FDA-Public Use
  Company Number: None

PATIENT
  Sex: Female
  Weight: 113.4 kg

DRUGS (9)
  1. ERIVEDGE [Suspect]
     Active Substance: VISMODEGIB
     Indication: Basal cell carcinoma
     Dosage: FREQUENCY : EVERY OTHER DAY;?
     Route: 048
  2. ATORVASTATIN CALCIUM [Concomitant]
     Active Substance: ATORVASTATIN CALCIUM
  3. FUROSEMIDE [Concomitant]
     Active Substance: FUROSEMIDE
  4. GABAPENTIN [Concomitant]
     Active Substance: GABAPENTIN
  5. ISOSORBIDE [Concomitant]
     Active Substance: ISOSORBIDE
  6. MONONITRATE ER [Concomitant]
  7. MELOXICAM [Concomitant]
     Active Substance: MELOXICAM
  8. OMEPRAZOLE [Concomitant]
     Active Substance: OMEPRAZOLE
  9. DOXYCYCLINE HYCLATE [Concomitant]
     Active Substance: DOXYCYCLINE HYCLATE

REACTIONS (1)
  - Fall [None]
